FAERS Safety Report 6636283-7 (Version None)
Quarter: 2010Q1

REPORT INFORMATION
  Report Type: 
  Country: None (occurrence: None)
  Receive Date: 20100311
  Receipt Date: 20100225
  Transmission Date: 20100710
  Serious: Yes (Hospitalization)
  Sender: FDA-Public Use
  Company Number: 002438

PATIENT

DRUGS (9)
  1. LACOSAMIDE [Suspect]
     Indication: EPILEPSY
     Dosage: (100 MG BID, 100MG BID ORAL)
     Dates: start: 20090824
  2. TAMIFLU /01400102/ [Concomitant]
  3. ZITHROMAX [Concomitant]
  4. KLONOPIN [Concomitant]
  5. FEMARA [Concomitant]
  6. ZOLEDRONIC ACID [Concomitant]
  7. LYRICA [Concomitant]
  8. CARBATROL [Concomitant]
  9. LEXAPRO [Concomitant]

REACTIONS (5)
  - CONVULSION [None]
  - DEPRESSION [None]
  - GAIT DISTURBANCE [None]
  - SUICIDAL IDEATION [None]
  - TEARFULNESS [None]
